FAERS Safety Report 24334212 (Version 4)
Quarter: 2024Q4

REPORT INFORMATION
  Report Type: Spontaneous
  Country: DE (occurrence: DE)
  Receive Date: 20240918
  Receipt Date: 20241118
  Transmission Date: 20250115
  Serious: Yes (Hospitalization, Other)
  Sender: NOVARTIS
  Company Number: DE-002147023-NVSC2024DE184965

PATIENT
  Age: 35 Year
  Sex: Male
  Weight: 80 kg

DRUGS (3)
  1. GILENYA [Suspect]
     Active Substance: FINGOLIMOD HYDROCHLORIDE
     Indication: Relapsing-remitting multiple sclerosis
     Dosage: 0.5 MG, QD
     Route: 048
     Dates: start: 20180410, end: 20240115
  2. VALSARTAN [Concomitant]
     Active Substance: VALSARTAN
     Indication: Hypertension
     Dosage: 160 MG, QD (ONCE IN THE MORNING)
     Route: 048
     Dates: start: 2014
  3. VALSARTAN [Concomitant]
     Active Substance: VALSARTAN
     Dosage: 80 MG, QD (ONCE IN THE EVENING)
     Route: 048
     Dates: start: 2014

REACTIONS (5)
  - Renal cell carcinoma [Recovered/Resolved]
  - Multiple sclerosis relapse [Unknown]
  - Blood pressure increased [Recovering/Resolving]
  - Herpes zoster [Recovered/Resolved]
  - Pernicious anaemia [Recovering/Resolving]

NARRATIVE: CASE EVENT DATE: 20220101
